FAERS Safety Report 18095120 (Version 1)
Quarter: 2020Q3

REPORT INFORMATION
  Report Type: Spontaneous
  Country: US (occurrence: US)
  Receive Date: 20200730
  Receipt Date: 20200730
  Transmission Date: 20201103
  Serious: No
  Sender: FDA-Public Use
  Company Number: US-ACTELION-A-NJ2020-206757

PATIENT

DRUGS (1)
  1. VELETRI [Suspect]
     Active Substance: EPOPROSTENOL
     Indication: COVID-19

REACTIONS (2)
  - Product use in unapproved indication [Unknown]
  - Incorrect route of product administration [Unknown]
